FAERS Safety Report 14122935 (Version 4)
Quarter: 2017Q4

REPORT INFORMATION
  Report Type: Spontaneous
  Country: AR (occurrence: AR)
  Receive Date: 20171025
  Receipt Date: 20171108
  Transmission Date: 20180321
  Serious: Yes (Hospitalization, Other)
  Sender: FDA-Public Use
  Company Number: PHHY2017AR155718

PATIENT
  Age: 83 Year
  Sex: Female

DRUGS (4)
  1. TRAVATAN [Suspect]
     Active Substance: TRAVOPROST
     Indication: INTRAOCULAR PRESSURE INCREASED
     Dosage: 1 GTT, QHS
     Route: 047
  2. GENTEAL MILD [Suspect]
     Active Substance: HYPROMELLOSE 2910 (4000 MPA.S)
     Indication: EYE IRRITATION
     Dosage: UNK, PRN
     Route: 047
  3. GENTEAL MILD [Suspect]
     Active Substance: HYPROMELLOSE 2910 (4000 MPA.S)
     Indication: OCULAR HYPERAEMIA
  4. GENTEAL MILD [Suspect]
     Active Substance: HYPROMELLOSE 2910 (4000 MPA.S)
     Indication: POST PROCEDURAL DISCOMFORT

REACTIONS (7)
  - Road traffic accident [Recovered/Resolved]
  - Foot fracture [Recovered/Resolved]
  - Rib fracture [Recovered/Resolved]
  - Arrhythmia [Unknown]
  - Aortic thrombosis [Unknown]
  - Anxiety [Not Recovered/Not Resolved]
  - Ocular discomfort [Unknown]
